FAERS Safety Report 23892906 (Version 1)
Quarter: 2024Q2

REPORT INFORMATION
  Report Type: Spontaneous
  Country: DE (occurrence: DE)
  Receive Date: 20240524
  Receipt Date: 20240524
  Transmission Date: 20240716
  Serious: Yes (Hospitalization, Other)
  Sender: FDA-Public Use
  Company Number: DE-002147023-NVSC2020DE255305

PATIENT
  Sex: Female
  Weight: 103 kg

DRUGS (4)
  1. FULVESTRANT [Suspect]
     Active Substance: FULVESTRANT
     Indication: Hormone receptor positive HER2 negative breast cancer
     Dosage: 500 MG, Q2W (DAILY DOSE)
     Route: 030
     Dates: start: 20190315, end: 20240405
  2. KISQALI [Suspect]
     Active Substance: RIBOCICLIB
     Indication: Hormone receptor positive HER2 negative breast cancer
     Dosage: 600 MG, QD (SCHEME 21 DAYS INTAKE, 7 DAYS PAUSE)
     Route: 048
     Dates: start: 20190315, end: 20240405
  3. ASPIRIN [Concomitant]
     Active Substance: ASPIRIN
     Indication: Angioplasty
     Dosage: UNK
     Route: 065
     Dates: start: 20201228
  4. TICAGRELOR [Concomitant]
     Active Substance: TICAGRELOR
     Indication: Angioplasty
     Dosage: UNK
     Route: 065
     Dates: start: 20201228

REACTIONS (6)
  - Cardiogenic shock [Recovering/Resolving]
  - Coronary artery disease [Recovered/Resolved]
  - Electrocardiogram QT prolonged [Recovering/Resolving]
  - Aortic valve stenosis [Unknown]
  - Mitral valve stenosis [Unknown]
  - Mitral valve incompetence [Unknown]

NARRATIVE: CASE EVENT DATE: 20200813
